FAERS Safety Report 4350815-3 (Version None)
Quarter: 2004Q2

REPORT INFORMATION
  Report Type: 
  Country: None (occurrence: None)
  Receive Date: 20040428
  Receipt Date: 20040420
  Transmission Date: 20050107
  Serious: Yes (Life-Threatening)
  Sender: FDA-Public Use
  Company Number: 2004206857US

PATIENT
  Age: 78 Year
  Sex: Female

DRUGS (7)
  1. CAMPTOSAR [Suspect]
     Indication: GASTRIC CANCER
     Dosage: 65 MG/M2, D1AND8/CYCLE 1, IV
     Route: 042
     Dates: start: 20021213, end: 20021220
  2. COMPARATOR-CISPLATIN (CISPLATIN, CISPLATIN) INJECTION [Suspect]
     Dosage: 25 MG/M2,D1+8CYCLE/1, IV
     Route: 042
     Dates: start: 20021213, end: 20021220
  3. CAPECITABINE (CAPECITABINE) [Suspect]
     Indication: GASTRIC CANCER
     Dosage: 1100 MG/M2,TWICE DAILY/CYCLE 1, ORAL
     Route: 048
     Dates: start: 20021213
  4. NORVASC [Concomitant]
  5. METOPROLOL SUCCINATE [Concomitant]
  6. ASPIRIN [Concomitant]
  7. MARIOL (DRONABINOL) [Concomitant]

REACTIONS (1)
  - FATIGUE [None]
